FAERS Safety Report 4384802-6 (Version None)
Quarter: 2004Q2

REPORT INFORMATION
  Report Type: 
  Country: None (occurrence: None)
  Receive Date: 20040623
  Receipt Date: 20040623
  Transmission Date: 20050107
  Serious: Yes (Death)
  Sender: FDA-Public Use
  Company Number: None

PATIENT
  Age: 23 Year
  Sex: Male
  Weight: 127.9144 kg

DRUGS (1)
  1. DURAGESIC [Suspect]

REACTIONS (3)
  - ACCIDENT [None]
  - DRUG TOXICITY [None]
  - MEDICATION ERROR [None]
